FAERS Safety Report 19277211 (Version 1)
Quarter: 2021Q2

REPORT INFORMATION
  Report Type: Spontaneous
  Country: US (occurrence: US)
  Receive Date: 20210520
  Receipt Date: 20210520
  Transmission Date: 20210717
  Serious: No
  Sender: FDA-Public Use
  Company Number: US-ASTRAZENECA-2021A335251

PATIENT
  Sex: Male
  Weight: 126.1 kg

DRUGS (6)
  1. JANUVIA [Concomitant]
     Active Substance: SITAGLIPTIN PHOSPHATE
     Dosage: WITHIN 3 YEARS
  2. SIMVASTATIN. [Concomitant]
     Active Substance: SIMVASTATIN
     Dosage: WERE STARTED 6 OR MORE YEARS AGO
  3. ASPIRIN. [Concomitant]
     Active Substance: ASPIRIN
     Dosage: 4 YEARS AGO
  4. BYDUREON BCISE [Suspect]
     Active Substance: EXENATIDE
     Route: 058
     Dates: start: 20190510
  5. METFORMIN [Concomitant]
     Active Substance: METFORMIN HYDROCHLORIDE
     Dosage: WERE STARTED 6 OR MORE YEARS AGO
  6. VITAMIN D [Concomitant]
     Active Substance: VITAMIN D NOS
     Dosage: 2 YEARS AGO

REACTIONS (3)
  - Device leakage [Unknown]
  - Injection site haemorrhage [Unknown]
  - Product dose omission issue [Recovering/Resolving]
